FAERS Safety Report 21954485 (Version 1)
Quarter: 2023Q1

REPORT INFORMATION
  Report Type: Report from Study
  Country: ES (occurrence: ES)
  Receive Date: 20230205
  Receipt Date: 20230205
  Transmission Date: 20230418
  Serious: Yes (Other)
  Sender: FDA-Public Use
  Company Number: ES-ViiV Healthcare Limited-PA2022GSK183679

PATIENT
  Age: 9 Year

DRUGS (3)
  1. LAMIVUDINE [Suspect]
     Active Substance: LAMIVUDINE
     Indication: Perinatal HIV infection
     Dosage: UNK
     Route: 065
  2. LOPINAVIR\RITONAVIR [Suspect]
     Active Substance: LOPINAVIR\RITONAVIR
     Indication: Perinatal HIV infection
     Dosage: UNK
     Route: 065
  3. ZIDOVUDINE [Suspect]
     Active Substance: ZIDOVUDINE
     Indication: Perinatal HIV infection
     Dosage: UNK
     Route: 065

REACTIONS (5)
  - HIV viraemia [Unknown]
  - Pathogen resistance [Unknown]
  - Treatment failure [Unknown]
  - Virologic failure [Unknown]
  - Viral mutation identified [Unknown]
